FAERS Safety Report 7367703-0 (Version None)
Quarter: 2011Q1

REPORT INFORMATION
  Report Type: 
  Country: None (occurrence: None)
  Receive Date: 20110322
  Receipt Date: 20110314
  Transmission Date: 20110831
  Serious: Yes (Other)
  Sender: FDA-Public Use
  Company Number: US-GILEAD-2010-0033768

PATIENT
  Sex: Female

DRUGS (11)
  1. LETAIRIS [Suspect]
     Indication: RHEUMATOID ARTHRITIS
  2. COUMADIN [Concomitant]
  3. POTASSIUM CHLORIDE [Concomitant]
  4. GLYBURIDE [Concomitant]
  5. OMEPRAZOLE [Concomitant]
  6. LEFLUNOMIDE [Concomitant]
  7. METFORMIN [Concomitant]
  8. SERTRALINE HYDROCHLORIDE [Concomitant]
  9. LASIX [Concomitant]
  10. CRESTOR [Concomitant]
  11. LETAIRIS [Suspect]
     Indication: PULMONARY HYPERTENSION
     Dates: start: 20090212

REACTIONS (1)
  - ANKLE FRACTURE [None]
